FAERS Safety Report 8413494-1 (Version None)
Quarter: 2012Q2

REPORT INFORMATION
  Report Type: 
  Country: None (occurrence: None)
  Receive Date: 20120605
  Receipt Date: 20120531
  Transmission Date: 20120825
  Serious: Yes (Hospitalization)
  Sender: FDA-Public Use
  Company Number: US-ROCHE-1069317

PATIENT
  Sex: Male
  Weight: 80.812 kg

DRUGS (9)
  1. INCIVEK [Suspect]
     Indication: HEPATITIS C
     Route: 048
     Dates: start: 20120409, end: 20120507
  2. ASPIRIN [Concomitant]
     Dosage: FREQUENCY: DAILY
     Route: 048
  3. OMEPRAZOLE [Concomitant]
     Indication: GASTROOESOPHAGEAL REFLUX DISEASE
     Dosage: FREQUENCY: DAILY
     Route: 048
  4. METOPROLOL TARTRATE [Concomitant]
     Indication: HYPERTENSION
     Dosage: FREQUENCY: DAILY
     Route: 048
  5. COPEGUS [Suspect]
     Indication: HEPATITIS C
     Dosage: 4 AM AND 6 PM
     Route: 048
     Dates: start: 20120409, end: 20120507
  6. SIMVASTATIN [Suspect]
     Indication: BLOOD CHOLESTEROL INCREASED
     Route: 048
     Dates: start: 20120101, end: 20120507
  7. LISINOPRIL [Concomitant]
     Indication: HYPERTENSION
     Dosage: FREQUENCY: DAILY
     Route: 048
  8. PEGASYS [Suspect]
     Indication: HEPATITIS C
     Route: 058
     Dates: start: 20120409, end: 20120507
  9. ZOCOR [Concomitant]
     Indication: PRODUCT USED FOR UNKNOWN INDICATION

REACTIONS (2)
  - RHABDOMYOLYSIS [None]
  - MUSCULAR WEAKNESS [None]
